FAERS Safety Report 8985226 (Version 2)
Quarter: 2013Q1

REPORT INFORMATION
  Report Type: Spontaneous
  Country: CZ (occurrence: CZ)
  Receive Date: 20121226
  Receipt Date: 20130111
  Transmission Date: 20140127
  Serious: Yes (Hospitalization, Other)
  Sender: FDA-Public Use
  Company Number: CZ-PFIZER INC-2012326111

PATIENT
  Age: 71 Year
  Sex: Male

DRUGS (6)
  1. EPANUTIN [Suspect]
     Indication: STATUS EPILEPTICUS
     Dosage: 1500 MG, UNK
     Route: 041
     Dates: start: 20121214, end: 20121214
  2. VALPROAT [Concomitant]
     Dosage: 500 MG, 2X/DAY
     Route: 048
  3. LETROX [Concomitant]
  4. SEDUXEN [Concomitant]
  5. ZINNAT [Concomitant]
  6. APAURIN [Concomitant]

REACTIONS (1)
  - Deep vein thrombosis [Recovering/Resolving]
